FAERS Safety Report 14952674 (Version 5)
Quarter: 2018Q3

REPORT INFORMATION
  Report Type: Spontaneous
  Country: DE (occurrence: DE)
  Receive Date: 20180530
  Receipt Date: 20180712
  Transmission Date: 20181010
  Serious: Yes (Other)
  Sender: FDA-Public Use
  Company Number: DE-GLAXOSMITHKLINE-DE2018GSK093302

PATIENT
  Sex: Male
  Weight: 56 kg

DRUGS (3)
  1. VIANI MITE [Suspect]
     Active Substance: FLUTICASONE PROPIONATE\SALMETEROL XINAFOATE
     Dosage: 1 PUFF(S), QD
     Route: 055
     Dates: end: 2016
  2. VIANI MITE [Suspect]
     Active Substance: FLUTICASONE PROPIONATE\SALMETEROL XINAFOATE
     Indication: ASTHMA
     Dosage: 75 UG, BID
     Route: 055
     Dates: start: 201412, end: 2016
  3. SALBUHEXAL [Concomitant]
     Active Substance: ALBUTEROL
     Indication: ASTHMA
     Dosage: UNK
     Route: 055

REACTIONS (6)
  - Epilepsy [Recovering/Resolving]
  - Electroencephalogram abnormal [Unknown]
  - Myoclonic epilepsy [Recovered/Resolved]
  - Photopsia [Unknown]
  - Juvenile myoclonic epilepsy [Recovering/Resolving]
  - Seizure [Recovered/Resolved]

NARRATIVE: CASE EVENT DATE: 2016
